FAERS Safety Report 22169354 (Version 1)
Quarter: 2023Q2

REPORT INFORMATION
  Report Type: Spontaneous
  Country: GR (occurrence: GR)
  Receive Date: 20230404
  Receipt Date: 20230404
  Transmission Date: 20230722
  Serious: No
  Sender: FDA-Public Use
  Company Number: GR-ALKEM LABORATORIES LIMITED-GR-ALKEM-2022-04080

PATIENT
  Age: 13 Year
  Sex: Male

DRUGS (2)
  1. COLCHICINE [Suspect]
     Active Substance: COLCHICINE
     Indication: Familial mediterranean fever
     Dosage: 1-2 MG/DAY
     Route: 065
  2. CANAKINUMAB [Suspect]
     Active Substance: CANAKINUMAB
     Indication: Familial mediterranean fever
     Dosage: 150 MILLIGRAM EVERY 6 THEN 8 WEEKS
     Route: 058

REACTIONS (1)
  - Drug resistance [Unknown]
